FAERS Safety Report 9175016 (Version 1)
Quarter: 2013Q1

REPORT INFORMATION
  Report Type: Spontaneous
  Country: CZ (occurrence: None)
  Receive Date: 20130315
  Receipt Date: 20130315
  Transmission Date: 20140127
  Serious: Yes (Other)
  Sender: FDA-Public Use
  Company Number: SYM-2013-01539

PATIENT
  Age: 66 Year
  Sex: Male

DRUGS (2)
  1. FLUOROURACIL [Suspect]
     Indication: COLORECTAL CANCER
  2. CAPECITABINE [Suspect]
     Indication: COLORECTAL CANCER

REACTIONS (1)
  - Diarrhoea [None]
